FAERS Safety Report 13998604 (Version 1)
Quarter: 2017Q3

REPORT INFORMATION
  Report Type: Spontaneous
  Country: US (occurrence: None)
  Receive Date: 20170922
  Receipt Date: 20170922
  Transmission Date: 20171128
  Serious: Yes (Hospitalization)
  Sender: FDA-Public Use
  Company Number: None

PATIENT
  Age: 37 Year
  Sex: Female
  Weight: 100 kg

DRUGS (4)
  1. CARBOPLATIN. [Suspect]
     Active Substance: CARBOPLATIN
     Dates: end: 20170831
  2. CYCLOPHOSPHAMIDE. [Suspect]
     Active Substance: CYCLOPHOSPHAMIDE
     Dates: end: 20170810
  3. DOXORUBICIN HYDROCHLORIDE. [Suspect]
     Active Substance: DOXORUBICIN HYDROCHLORIDE
     Dates: end: 20170810
  4. TAXOL [Suspect]
     Active Substance: PACLITAXEL
     Dates: end: 20170907

REACTIONS (5)
  - Enterovirus infection [None]
  - Productive cough [None]
  - Pyrexia [None]
  - Immunosuppression [None]
  - Hypoxia [None]

NARRATIVE: CASE EVENT DATE: 20170909
